FAERS Safety Report 10034171 (Version 1)
Quarter: 2014Q1

REPORT INFORMATION
  Report Type: Spontaneous
  Country: US (occurrence: None)
  Receive Date: 20140324
  Receipt Date: 20140324
  Transmission Date: 20141002
  Serious: Yes (Other)
  Sender: FDA-Public Use
  Company Number: None

PATIENT
  Age: 41 Year
  Sex: Male

DRUGS (1)
  1. STIVARGA [Suspect]
     Indication: COLON CANCER
     Route: 048
     Dates: start: 20140313, end: 20140319

REACTIONS (6)
  - Abdominal pain [None]
  - Muscle spasms [None]
  - Back pain [None]
  - Paralysis [None]
  - Pain [None]
  - Pain [None]
